FAERS Safety Report 22040719 (Version 2)
Quarter: 2023Q4

REPORT INFORMATION
  Report Type: Spontaneous
  Country: US (occurrence: US)
  Receive Date: 20230227
  Receipt Date: 20231220
  Transmission Date: 20240110
  Serious: Yes (Life-Threatening, Hospitalization, Other)
  Sender: FDA-Public Use
  Company Number: US-PFIZER INC-PV202300033230

PATIENT
  Age: 15 Year
  Sex: Male

DRUGS (16)
  1. LORAZEPAM [Suspect]
     Active Substance: LORAZEPAM
     Indication: Catatonia
     Dosage: UNK
  2. CLOZAPINE [Concomitant]
     Active Substance: CLOZAPINE
     Indication: Psychotic disorder
     Dosage: 200 MG (IN THE MORNING)
  3. CLOZAPINE [Concomitant]
     Active Substance: CLOZAPINE
     Dosage: 100 MG (IN THE AFTERNOON)
  4. CLOZAPINE [Concomitant]
     Active Substance: CLOZAPINE
     Dosage: 250 MG (IN THE EVENING)
  5. CLOZAPINE [Concomitant]
     Active Substance: CLOZAPINE
     Dosage: 200 MG (IN THE MORNING)
  6. CLOZAPINE [Concomitant]
     Active Substance: CLOZAPINE
     Dosage: 100 MG (IN THE MORNING) DECREASED
  7. CLOZAPINE [Concomitant]
     Active Substance: CLOZAPINE
     Dosage: 200 MG (IN THE EVENING) DECREASED
  8. CLOZAPINE [Concomitant]
     Active Substance: CLOZAPINE
     Dosage: 100 MG (IN THE MORNING) DECREASED
  9. CLOZAPINE [Concomitant]
     Active Substance: CLOZAPINE
     Dosage: 100 MG (IN THE EVENING) DECREASED
  10. CLOZAPINE [Concomitant]
     Active Substance: CLOZAPINE
     Dosage: 50 MG, 2X/DAY (DECREASED)
  11. CLOZAPINE [Concomitant]
     Active Substance: CLOZAPINE
     Dosage: 100 MG, 2X/DAY (INCREASED)
  12. DIVALPROEX SODIUM [Concomitant]
     Active Substance: DIVALPROEX SODIUM
     Indication: Catatonia
     Dosage: 375 MG, 2X/DAY (LOADING DOSE)
  13. MEMANTINE [Concomitant]
     Active Substance: MEMANTINE
     Indication: Catatonia
     Dosage: 2.5 MG, 2X/DAY
  14. MEMANTINE [Concomitant]
     Active Substance: MEMANTINE
     Dosage: 5 MG, 2X/DAY (INCREASED)
  15. MEMANTINE [Concomitant]
     Active Substance: MEMANTINE
     Dosage: 7.5 MG, 2X/DAY (INCREASED)
  16. MEMANTINE [Concomitant]
     Active Substance: MEMANTINE
     Dosage: 10 MG, 2X/DAY (INCREASED)

REACTIONS (2)
  - Sedation [Unknown]
  - Off label use [Unknown]
